FAERS Safety Report 8563456-9 (Version None)
Quarter: 2012Q3

REPORT INFORMATION
  Report Type: 
  Country: None (occurrence: None)
  Receive Date: 20120802
  Receipt Date: 20110324
  Transmission Date: 20120928
  Serious: Yes (Hospitalization, Other)
  Sender: FDA-Public Use
  Company Number: US-BAYER-201011737NA

PATIENT
  Age: 23 Year
  Sex: Female
  Weight: 50 kg

DRUGS (20)
  1. CIPROFLOXACIN [Concomitant]
     Dates: start: 20080701
  2. HYDROCODONE [Concomitant]
     Dates: start: 20090601
  3. CLARINEX [Concomitant]
     Dates: start: 20090801
  4. CEPHALEXIN [Concomitant]
     Dates: start: 20080401
  5. YAZ [Suspect]
     Indication: PRODUCT USED FOR UNKNOWN INDICATION
     Dosage: PHARMACY RECORDS: 3 YAZ REFILLS WERE NOTED ON 05MAY2009, 09JUL2009 AND 17AUG2009.
     Route: 048
     Dates: start: 20080801, end: 20090817
  6. TREIMET [Concomitant]
     Dates: start: 20090806
  7. DOCUSATE SODIUM [Concomitant]
     Dates: start: 20090601
  8. HYDROCODONE BITARTRATE + ACETAMINOPHEN [Concomitant]
     Dates: start: 20081101
  9. PHENAZOPYRIDINE HCL TAB [Concomitant]
     Indication: DYSURIA
     Dates: start: 20080101
  10. PROCHLORPERAZINE [Concomitant]
     Indication: PSYCHOTIC DISORDER
     Dates: start: 20081101
  11. TOPAMAX [Concomitant]
     Indication: MIGRAINE
     Dates: start: 20090301
  12. HYDROCODONE BITARTRATE AND ACETAMINOPHEN [Concomitant]
     Dates: start: 20081101
  13. OMNICEF [Concomitant]
     Dates: start: 20081101
  14. MIRENA [Concomitant]
     Route: 015
     Dates: start: 20080824
  15. AMOXICILLIN [Concomitant]
     Dates: start: 20080301
  16. PROPRANOLOL [Concomitant]
     Dates: start: 20090801
  17. YAZ [Suspect]
     Route: 048
     Dates: start: 20080801, end: 20090817
  18. YAZ [Suspect]
     Route: 048
     Dates: start: 20080801, end: 20090817
  19. YAZ [Suspect]
     Route: 048
     Dates: start: 20080801, end: 20090817
  20. RELPAX [Concomitant]
     Indication: MIGRAINE
     Dates: start: 20090301, end: 20090415

REACTIONS (2)
  - CHOLECYSTITIS CHRONIC [None]
  - ABDOMINAL PAIN UPPER [None]
